FAERS Safety Report 14731882 (Version 2)
Quarter: 2018Q2

REPORT INFORMATION
  Report Type: Report from Study
  Country: BR (occurrence: BR)
  Receive Date: 20180408
  Receipt Date: 20180410
  Transmission Date: 20180711
  Serious: Yes (Death)
  Sender: FDA-Public Use
  Company Number: BR-ROCHE-2075690

PATIENT
  Age: 79 Year
  Sex: Male
  Weight: 46 kg

DRUGS (1)
  1. ATEZOLIZUMAB. [Suspect]
     Active Substance: ATEZOLIZUMAB
     Indication: NON-SMALL CELL LUNG CANCER METASTATIC
     Route: 042
     Dates: start: 20171123, end: 20180115

REACTIONS (4)
  - Fatigue [Recovering/Resolving]
  - Dyspnoea [Unknown]
  - Eastern Cooperative Oncology Group performance status worsened [Fatal]
  - Decreased appetite [Unknown]

NARRATIVE: CASE EVENT DATE: 20171130
